FAERS Safety Report 6910204-1 (Version None)
Quarter: 2010Q3

REPORT INFORMATION
  Report Type: 
  Country: None (occurrence: None)
  Receive Date: 20100806
  Receipt Date: 20100729
  Transmission Date: 20110219
  Serious: Yes (Hospitalization)
  Sender: FDA-Public Use
  Company Number: US-PERRIGO-10US011753

PATIENT
  Sex: Male
  Weight: 90.703 kg

DRUGS (4)
  1. LORATADINE 10 MG 612 [Suspect]
     Indication: SEASONAL ALLERGY
     Dosage: 10 MG, DAILY, PRN
     Route: 048
     Dates: start: 20040701, end: 20091101
  2. SPIRIVA [Concomitant]
     Indication: ASTHMA
     Dosage: ONCE DAILY
     Route: 055
  3. ALBUTEROL [Concomitant]
     Indication: ASTHMA
     Dosage: UNK, AS NEEDED
     Route: 055
  4. NEBULIZER TREATMENT [Concomitant]
     Indication: ASTHMA
     Dosage: UNK, PRN
     Route: 055

REACTIONS (1)
  - URINARY RETENTION [None]
